FAERS Safety Report 13815148 (Version 1)
Quarter: 2017Q3

REPORT INFORMATION
  Report Type: Spontaneous
  Country: US (occurrence: US)
  Receive Date: 20170731
  Receipt Date: 20170731
  Transmission Date: 20171127
  Serious: No
  Sender: FDA-Public Use
  Company Number: US-BAYER-2017-145456

PATIENT
  Sex: Female

DRUGS (2)
  1. ALEVE [Suspect]
     Active Substance: NAPROXEN SODIUM
     Indication: GASTROOESOPHAGEAL REFLUX DISEASE
  2. ALEVE [Suspect]
     Active Substance: NAPROXEN SODIUM
     Indication: DYSPEPSIA
     Dosage: UNK, PRN
     Route: 065

REACTIONS (1)
  - Product use in unapproved indication [Unknown]
